FAERS Safety Report 4624183-3 (Version None)
Quarter: 2005Q1

REPORT INFORMATION
  Report Type: 
  Country: None (occurrence: None)
  Receive Date: 20050331
  Receipt Date: 20050325
  Transmission Date: 20050727
  Serious: Yes (Death, Life-Threatening, Hospitalization)
  Sender: FDA-Public Use
  Company Number: FR-GLAXOSMITHKLINE-B0376194A

PATIENT
  Age: 48 Year
  Sex: Male
  Weight: 69 kg

DRUGS (5)
  1. TELZIR [Suspect]
     Indication: HIV INFECTION
     Dosage: 700MG TWICE PER DAY
     Route: 048
     Dates: start: 20041001, end: 20041213
  2. AUGMENTIN '125' [Suspect]
     Route: 048
     Dates: start: 20041208, end: 20041213
  3. NORVIR [Suspect]
     Indication: HIV INFECTION
     Dosage: 100MG TWICE PER DAY
     Route: 048
     Dates: start: 20040503, end: 20041213
  4. VIREAD [Suspect]
     Indication: HIV INFECTION
     Dosage: 300MG PER DAY
     Route: 048
     Dates: start: 20040503
  5. EMTRIVA [Suspect]
     Indication: HIV INFECTION
     Dosage: 200MG PER DAY
     Route: 048
     Dates: start: 20040503

REACTIONS (8)
  - CYTOLYTIC HEPATITIS [None]
  - DEATH [None]
  - HEPATIC FAILURE [None]
  - HEPATITIS CHOLESTATIC [None]
  - HYPOXIA [None]
  - JAUNDICE [None]
  - MULTI-ORGAN FAILURE [None]
  - PYREXIA [None]
